FAERS Safety Report 20044507 (Version 1)
Quarter: 2021Q4

REPORT INFORMATION
  Report Type: Spontaneous
  Country: US (occurrence: US)
  Receive Date: 20211108
  Receipt Date: 20211108
  Transmission Date: 20220303
  Serious: No
  Sender: FDA-Public Use
  Company Number: US-OTSUKA-2020_031772

PATIENT
  Age: 62 Year
  Sex: Male
  Weight: 134.24 kg

DRUGS (1)
  1. NUEDEXTA [Suspect]
     Active Substance: DEXTROMETHORPHAN HYDROBROMIDE\QUINIDINE SULFATE
     Indication: Affect lability
     Dosage: 1 DF (20 MG/10 MG), BID
     Route: 048
     Dates: start: 2017

REACTIONS (2)
  - Disease recurrence [Recovered/Resolved]
  - Product dose omission issue [Unknown]
